FAERS Safety Report 9141088 (Version 2)
Quarter: 2013Q2

REPORT INFORMATION
  Report Type: Spontaneous
  Country: AU (occurrence: AU)
  Receive Date: 20130305
  Receipt Date: 20130418
  Transmission Date: 20140414
  Serious: Yes (Death)
  Sender: FDA-Public Use
  Company Number: AU-B.I. PHARMACEUTICALS,INC./RIDGEFIELD-2013-AU-00235AU

PATIENT
  Sex: Female
  Weight: 45 kg

DRUGS (5)
  1. PRADAXA [Suspect]
     Dosage: 220 MG
     Dates: end: 20121224
  2. BISPRO [Concomitant]
  3. LIPITOR [Concomitant]
  4. PROTON PUMP INHIBITOR [Concomitant]
  5. SELECTIVE SEROTONIN REUPTAKE INHIBITOR [Concomitant]

REACTIONS (1)
  - Cerebrovascular accident [Fatal]
